FAERS Safety Report 5299443-6 (Version None)
Quarter: 2007Q2

REPORT INFORMATION
  Report Type: 
  Country: None (occurrence: None)
  Receive Date: 20070417
  Receipt Date: 20070402
  Transmission Date: 20071010
  Serious: Yes (Life-Threatening, Hospitalization)
  Sender: FDA-Public Use
  Company Number: US-AMGEN-US140247

PATIENT
  Sex: Male
  Weight: 92.6 kg

DRUGS (10)
  1. ENBREL [Suspect]
     Indication: ANKYLOSING SPONDYLITIS
     Route: 058
     Dates: start: 20050101, end: 20050601
  2. BEXTRA [Concomitant]
  3. QVAR 40 [Concomitant]
  4. FLEXERIL [Concomitant]
  5. LORTAB [Concomitant]
  6. FOLIC ACID [Concomitant]
  7. METHOTREXATE [Concomitant]
  8. PHENERGAN HCL [Concomitant]
  9. PREDNISOLONE [Concomitant]
  10. IBUPROFEN [Concomitant]

REACTIONS (1)
  - ANAPHYLACTIC REACTION [None]
